FAERS Safety Report 7939218-X (Version None)
Quarter: 2011Q4

REPORT INFORMATION
  Report Type: 
  Country: None (occurrence: None)
  Receive Date: 20111124
  Receipt Date: 20110927
  Transmission Date: 20120403
  Serious: Yes (Other)
  Sender: FDA-Public Use
  Company Number: US-ROCHE-795658

PATIENT
  Sex: Female
  Weight: 62.198 kg

DRUGS (2)
  1. BONIVA [Suspect]
     Indication: OSTEOPOROSIS
     Route: 048
  2. ACTONEL [Concomitant]
     Indication: OSTEOPOROSIS
     Route: 048

REACTIONS (4)
  - BONE NEOPLASM [None]
  - WRIST FRACTURE [None]
  - SPINAL COLUMN INJURY [None]
  - BONE DENSITY DECREASED [None]
